FAERS Safety Report 6598045-9 (Version None)
Quarter: 2010Q1

REPORT INFORMATION
  Report Type: 
  Country: None (occurrence: None)
  Receive Date: 20100216
  Receipt Date: 20100204
  Transmission Date: 20100710
  Serious: Yes (Hospitalization, Other)
  Sender: FDA-Public Use
  Company Number: 2010US000389

PATIENT
  Age: 26 Year
  Sex: Female

DRUGS (2)
  1. PROTOPIC [Suspect]
     Indication: SEBORRHOEIC DERMATITIS
     Dosage: TOPICAL
     Route: 061
  2. ISOTRETINOIN [Suspect]
     Indication: ACNE
     Dosage: 20 MG, UID/QD, ORAL
     Route: 048
     Dates: start: 20040101, end: 20040101

REACTIONS (2)
  - DRUG INEFFECTIVE [None]
  - NEURILEMMOMA [None]
